FAERS Safety Report 21620009 (Version 2)
Quarter: 2023Q1

REPORT INFORMATION
  Report Type: Report from Study
  Country: CN (occurrence: None)
  Receive Date: 20221121
  Receipt Date: 20230120
  Transmission Date: 20230418
  Serious: Yes (Hospitalization)
  Sender: FDA-Public Use
  Company Number: CN-ROCHE-3140157

PATIENT
  Sex: Male
  Weight: 76 kg

DRUGS (14)
  1. PLACEBO [Suspect]
     Active Substance: UNSPECIFIED INGREDIENT
     Indication: Small cell lung cancer
     Dosage: ON 08/JUN/2022, MOST RECENT DOSE PRIOR TO SAE WAS ADMINISTERED.
     Route: 041
     Dates: start: 20220407, end: 20220808
  2. ATEZOLIZUMAB [Suspect]
     Active Substance: ATEZOLIZUMAB
     Indication: Small cell lung cancer
     Dosage: ON 08/JUN/2022, MOST RECENT DOSE OF ATEZOLIZUMAB PRIOR TO SAE WAS ADMINISTERED.
     Route: 041
     Dates: start: 20220407, end: 20220808
  3. DEXAMETHASONE SODIUM PHOSPHATE [Concomitant]
     Active Substance: DEXAMETHASONE SODIUM PHOSPHATE
     Route: 042
     Dates: start: 20220712, end: 20220716
  4. DEXAMETHASONE SODIUM PHOSPHATE [Concomitant]
     Active Substance: DEXAMETHASONE SODIUM PHOSPHATE
     Route: 042
     Dates: start: 20220718, end: 20220728
  5. AMLODIPINE BESYLATE [Concomitant]
     Active Substance: AMLODIPINE BESYLATE
     Dates: start: 202102
  6. COENZYME Q10 [Concomitant]
     Active Substance: DIETARY SUPPLEMENT\UBIDECARENONE
     Dates: start: 20220517, end: 20220807
  7. COENZYME Q10 [Concomitant]
     Active Substance: DIETARY SUPPLEMENT\UBIDECARENONE
     Dates: start: 20220808, end: 20220822
  8. MANNITOL [Concomitant]
     Active Substance: MANNITOL
     Dates: start: 20220712, end: 20220715
  9. MANNITOL [Concomitant]
     Active Substance: MANNITOL
     Dates: start: 20220718, end: 20220728
  10. ESOMEPRAZOLE SODIUM [Concomitant]
     Active Substance: ESOMEPRAZOLE SODIUM
     Dates: start: 20220712, end: 20220715
  11. ESOMEPRAZOLE SODIUM [Concomitant]
     Active Substance: ESOMEPRAZOLE SODIUM
     Dates: start: 20220718, end: 20220728
  12. POTASSIUM CHLORIDE [Concomitant]
     Active Substance: POTASSIUM CHLORIDE
     Dates: start: 20220808, end: 20220815
  13. INSULIN NOS [Concomitant]
     Active Substance: INSULIN NOS
     Dosage: 6U
     Dates: start: 20220808, end: 20220815
  14. ISOSORBIDE DINITRATE [Concomitant]
     Active Substance: ISOSORBIDE DINITRATE
     Dates: start: 20220808, end: 20220815

REACTIONS (2)
  - Myocardial injury [Not Recovered/Not Resolved]
  - Pneumonitis [Recovered/Resolved]

NARRATIVE: CASE EVENT DATE: 20220712
